FAERS Safety Report 11649262 (Version 5)
Quarter: 2015Q4

REPORT INFORMATION
  Report Type: Spontaneous
  Country: US (occurrence: US)
  Receive Date: 20151021
  Receipt Date: 20151209
  Transmission Date: 20160304
  Serious: Yes (Hospitalization)
  Sender: FDA-Public Use
  Company Number: US-ACTELION-A-US2015-125710

PATIENT
  Age: 72 Year
  Sex: Female

DRUGS (2)
  1. VELETRI [Suspect]
     Active Substance: EPOPROSTENOL
     Indication: PULMONARY HYPERTENSION
     Dosage: 49 NG/KG PER MIN
     Route: 042
     Dates: start: 20120221
  2. TYVASO [Concomitant]
     Active Substance: TREPROSTINIL

REACTIONS (6)
  - Polypectomy [Unknown]
  - Gastrointestinal haemorrhage [Unknown]
  - Fluid retention [Unknown]
  - Polyp [Unknown]
  - Faeces discoloured [Unknown]
  - Gastrointestinal polyp haemorrhage [Unknown]

NARRATIVE: CASE EVENT DATE: 20151027
